FAERS Safety Report 19206947 (Version 11)
Quarter: 2021Q4

REPORT INFORMATION
  Report Type: Report from Study
  Country: US (occurrence: US)
  Receive Date: 20210503
  Receipt Date: 20211108
  Transmission Date: 20220303
  Serious: No
  Sender: FDA-Public Use
  Company Number: NVSC2021US097771

PATIENT
  Age: 79 Year
  Sex: Female

DRUGS (3)
  1. ENTRESTO [Suspect]
     Active Substance: SACUBITRIL\VALSARTAN
     Indication: Product used for unknown indication
     Dosage: 1 DF, BID (24/26 MG)
     Route: 048
     Dates: start: 2020
  2. ENTRESTO [Suspect]
     Active Substance: SACUBITRIL\VALSARTAN
     Dosage: 1 DF, BID (24/26 MG)
     Route: 048
  3. ENTRESTO [Suspect]
     Active Substance: SACUBITRIL\VALSARTAN
     Dosage: 1 DF, QD (24/26 MG)
     Route: 048

REACTIONS (11)
  - Nasopharyngitis [Unknown]
  - Malaise [Unknown]
  - COVID-19 [Recovering/Resolving]
  - Decreased appetite [Recovering/Resolving]
  - Feeling hot [Unknown]
  - Feeling abnormal [Unknown]
  - Throat clearing [Not Recovered/Not Resolved]
  - Fatigue [Unknown]
  - Hypotension [Recovering/Resolving]
  - Product dose omission issue [Unknown]
  - Inappropriate schedule of product administration [Unknown]

NARRATIVE: CASE EVENT DATE: 20210620
